FAERS Safety Report 9019910 (Version 1)
Quarter: 2013Q1

REPORT INFORMATION
  Report Type: Spontaneous
  Country: BR (occurrence: BR)
  Receive Date: 20130118
  Receipt Date: 20130118
  Transmission Date: 20140127
  Serious: Yes (Other)
  Sender: FDA-Public Use
  Company Number: BR-PFIZER INC-2012321928

PATIENT
  Age: 57 Year
  Sex: Female
  Weight: 80 kg

DRUGS (5)
  1. LIPITOR [Suspect]
     Indication: BLOOD CHOLESTEROL
     Dosage: UNK
     Route: 048
     Dates: start: 2009
  2. LIPITOR [Suspect]
     Dosage: UNK
     Route: 048
     Dates: start: 201203
  3. SIMVASTATIN [Suspect]
     Dosage: UNK
  4. ENDROSTAN [Suspect]
     Indication: BLOOD CALCIUM
     Dosage: 1 TABLET, WEEKLY
  5. PURAN T4 [Concomitant]
     Dosage: UNK

REACTIONS (13)
  - Spinal fracture [Unknown]
  - Hypokinesia [Recovering/Resolving]
  - Asthenia [Recovering/Resolving]
  - Myalgia [Recovering/Resolving]
  - Bone pain [Unknown]
  - Drug ineffective [Unknown]
  - Blood pressure increased [Unknown]
  - Pain [Unknown]
  - Activities of daily living impaired [Unknown]
  - Headache [Unknown]
  - Retching [Unknown]
  - Pain [Recovering/Resolving]
  - Pain in extremity [Not Recovered/Not Resolved]
